FAERS Safety Report 7561265-0 (Version None)
Quarter: 2011Q2

REPORT INFORMATION
  Report Type: 
  Country: None (occurrence: None)
  Receive Date: 20110621
  Receipt Date: 20110318
  Transmission Date: 20111010
  Serious: No
  Sender: FDA-Public Use
  Company Number: US-ASTRAZENECA-2011SE15379

PATIENT
  Sex: Female

DRUGS (2)
  1. PULMICORT FLEXHALER [Suspect]
     Indication: BRONCHOSPASM
     Route: 055
     Dates: start: 20110317, end: 20110317
  2. CIPROFLOXACIN HCL [Concomitant]

REACTIONS (7)
  - THROAT IRRITATION [None]
  - DYSPNOEA [None]
  - BACK PAIN [None]
  - NERVOUSNESS [None]
  - IRRITABILITY [None]
  - RESTLESSNESS [None]
  - ANXIETY [None]
